FAERS Safety Report 8020348-1 (Version None)
Quarter: 2012Q1

REPORT INFORMATION
  Report Type: 
  Country: None (occurrence: None)
  Receive Date: 20120103
  Receipt Date: 20111222
  Transmission Date: 20120608
  Serious: Yes (Death)
  Sender: FDA-Public Use
  Company Number: US-CELGENEUS-163-21880-11091313

PATIENT
  Sex: Female

DRUGS (6)
  1. REVLIMID [Suspect]
     Indication: MULTIPLE MYELOMA
     Dosage: 25 MILLIGRAM
     Route: 048
     Dates: start: 20110201
  2. REVLIMID [Suspect]
     Dosage: 10 MILLIGRAM
     Route: 048
     Dates: start: 20110401
  3. ZOMETA [Concomitant]
     Dosage: 4 MILLIGRAM
     Route: 041
     Dates: start: 20110223, end: 20110808
  4. REVLIMID [Suspect]
     Dosage: 5 MILLIGRAM
     Route: 048
     Dates: start: 20110601, end: 20110801
  5. VIDAZA [Suspect]
     Dosage: 127.5 MILLIGRAM
     Route: 065
     Dates: start: 20110806, end: 20110810
  6. LEUKINE [Concomitant]
     Indication: NEUTROPENIA
     Dosage: 500 MICROGRAM
     Route: 058
     Dates: start: 20110309, end: 20110311

REACTIONS (1)
  - ACUTE LEUKAEMIA [None]
